FAERS Safety Report 11251032 (Version 1)
Quarter: 2015Q3

REPORT INFORMATION
  Report Type: Spontaneous
  Country: US (occurrence: US)
  Receive Date: 20150708
  Receipt Date: 20150708
  Transmission Date: 20151125
  Serious: Yes (Other)
  Sender: FDA-Public Use
  Company Number: US-ELI_LILLY_AND_COMPANY-US201104002699

PATIENT
  Age: 47 Year
  Sex: Male
  Weight: 94.33 kg

DRUGS (31)
  1. METOPROLOL TARTRATE. [Concomitant]
     Active Substance: METOPROLOL TARTRATE
     Dosage: UNK
     Dates: start: 20110323
  2. CARBO [Concomitant]
     Dosage: UNK
     Dates: start: 2010
  3. VITAMIN B12 [Concomitant]
     Active Substance: CYANOCOBALAMIN
     Dosage: 1000 MG, EVERY 3 WEEKS
     Route: 058
     Dates: start: 20100819, end: 20110408
  4. SODIUM CHLORIDE. [Concomitant]
     Active Substance: SODIUM CHLORIDE
     Dosage: UNK
     Dates: start: 20110121
  5. DEXAMETHASONE SODIUM PHOSPHATE. [Concomitant]
     Active Substance: DEXAMETHASONE SODIUM PHOSPHATE
     Dosage: 10 MG, QD
     Route: 042
     Dates: start: 20110203, end: 20110513
  6. CORTICOSTEROIDS [Concomitant]
     Active Substance: CORTICOSTEROID NOS
     Dosage: 8 MG, BID
     Dates: start: 20100819, end: 20110409
  7. PHENERGAN [Concomitant]
     Active Substance: PROMETHAZINE HYDROCHLORIDE
     Dosage: UNK UNK, UNKNOWN
     Route: 048
  8. TYLENOL [Concomitant]
     Active Substance: ACETAMINOPHEN
     Dosage: UNK, UNKNOWN
     Route: 048
  9. PALONOSETRON HYDROCHLORIDE [Concomitant]
     Active Substance: PALONOSETRON HYDROCHLORIDE
     Dosage: 25 MG, UNK
     Route: 042
     Dates: start: 20110303, end: 20110303
  10. ALIMTA [Suspect]
     Active Substance: PEMETREXED DISODIUM
     Indication: NON-SMALL CELL LUNG CANCER
     Dosage: 500MG/M2, EVERY 21 DAYS
     Route: 042
     Dates: start: 20100819
  11. CULTURELLE [Concomitant]
     Active Substance: LACTOBACILLUS RHAMNOSUS
     Dosage: UNK, UNKNOWN
     Route: 065
     Dates: start: 20110215
  12. LASIX [Concomitant]
     Active Substance: FUROSEMIDE
     Dosage: UNK, UNKNOWN
     Dates: start: 20110408
  13. PROMETHAZINE HYDROCHLORIDE. [Concomitant]
     Active Substance: PROMETHAZINE HYDROCHLORIDE
     Dosage: UNK, UNKNOWN
     Route: 065
  14. VANCOMYCIN HYDROCHLORIDE. [Concomitant]
     Active Substance: VANCOMYCIN HYDROCHLORIDE
     Dosage: 1 G, UNK
     Route: 042
     Dates: start: 20110206, end: 20110506
  15. FOLIC ACID. [Concomitant]
     Active Substance: FOLIC ACID
     Dosage: 1 MG, QD
     Route: 048
     Dates: start: 20100819, end: 20110501
  16. CIPRO [Concomitant]
     Active Substance: CIPROFLOXACIN HYDROCHLORIDE
     Dosage: UNK, UNKNOWN
     Route: 065
     Dates: start: 20110215
  17. LEVAQUIN [Concomitant]
     Active Substance: LEVOFLOXACIN
     Dosage: UNK
     Dates: start: 20110215, end: 20110217
  18. LORAZEPAM. [Concomitant]
     Active Substance: LORAZEPAM
     Dosage: UNK
     Dates: start: 20110303
  19. PRILOSEC [Concomitant]
     Active Substance: OMEPRAZOLE MAGNESIUM
  20. ZOFRAN [Concomitant]
     Active Substance: ONDANSETRON HYDROCHLORIDE
     Dosage: UNK, UNKNOWN
     Route: 048
  21. ALOXI [Concomitant]
     Active Substance: PALONOSETRON HYDROCHLORIDE
     Dosage: 0.25 MG, QD
     Route: 042
     Dates: start: 20110121, end: 20110531
  22. NAVELBINE [Concomitant]
     Active Substance: VINORELBINE TARTRATE
     Dosage: UNK
     Dates: start: 2010
  23. GRANISETRON HYDROCHLORIDE. [Concomitant]
     Active Substance: GRANISETRON HYDROCHLORIDE
     Dosage: UNK, UNKNOWN
     Route: 065
     Dates: start: 20110318
  24. LORTAB [Concomitant]
     Active Substance: ACETAMINOPHEN\HYDROCODONE BITARTRATE
     Dosage: UNK, UNKNOWN
     Dates: start: 20110419
  25. REGLAN [Concomitant]
     Active Substance: METOCLOPRAMIDE HYDROCHLORIDE
     Dosage: UNK
     Dates: start: 20110513
  26. FOLBIC [Concomitant]
     Active Substance: CYANOCOBALAMIN\FOLIC ACID\PYRIDOXINE
  27. KYTRIL [Concomitant]
     Active Substance: GRANISETRON HYDROCHLORIDE
     Dosage: 20 MG, UNKNOWN
     Route: 042
     Dates: start: 20020711, end: 20110512
  28. ALIMTA [Suspect]
     Active Substance: PEMETREXED DISODIUM
     Dosage: 1000 MG/M2, EVERY 21 DAYS
     Route: 042
     Dates: end: 20110408
  29. VANCOMYCIN HYDROCHLORIDE. [Concomitant]
     Active Substance: VANCOMYCIN HYDROCHLORIDE
     Dosage: UNK
     Dates: start: 20110511
  30. ACTIVASE [Concomitant]
     Active Substance: ALTEPLASE
     Dosage: 2 MG, QD
     Route: 042
     Dates: start: 20110203, end: 20110203
  31. ATIVAN [Concomitant]
     Active Substance: LORAZEPAM
     Dosage: 0.5 MG, UNK
     Route: 048
     Dates: start: 20110318, end: 20110319

REACTIONS (2)
  - Neoplasm progression [Unknown]
  - Lacrimation increased [Recovered/Resolved]

NARRATIVE: CASE EVENT DATE: 20110408
